FAERS Safety Report 24330063 (Version 1)
Quarter: 2024Q3

REPORT INFORMATION
  Report Type: Spontaneous
  Country: JP (occurrence: JP)
  Receive Date: 20240917
  Receipt Date: 20240917
  Transmission Date: 20241016
  Serious: Yes (Hospitalization)
  Sender: JOHNSON AND JOHNSON
  Company Number: JP-JNJFOC-20240919812

PATIENT
  Age: 35 Year
  Sex: Female

DRUGS (33)
  1. SIMPONI [Suspect]
     Active Substance: GOLIMUMAB
     Indication: Colitis ulcerative
     Dosage: DOSE UNKNOWN
     Route: 058
     Dates: start: 201808, end: 2022
  2. STELARA [Concomitant]
     Active Substance: USTEKINUMAB
     Indication: Colitis ulcerative
     Dosage: DOSE UNKNOWN
     Route: 041
     Dates: start: 202207
  3. LIALDA [Concomitant]
     Active Substance: MESALAMINE
     Indication: Colitis ulcerative
     Dosage: IN THE MORNING
     Route: 048
     Dates: start: 201704
  4. HERBALS [Concomitant]
     Active Substance: HERBALS
     Indication: Colitis ulcerative
     Dosage: DOSE UNKNOWN
     Route: 065
     Dates: start: 200910
  5. HERBALS [Concomitant]
     Active Substance: HERBALS
     Dosage: 1 PACKET, AFTER EACH MEAL
     Route: 065
     Dates: start: 201408
  6. PREDNISOLONE [Concomitant]
     Active Substance: PREDNISOLONE
     Dosage: IN THE MORNING
     Route: 048
     Dates: start: 200204, end: 2002
  7. PREDNISOLONE [Concomitant]
     Active Substance: PREDNISOLONE
     Dosage: IN THE MORNING
     Route: 048
     Dates: start: 2002, end: 2002
  8. PREDNISOLONE [Concomitant]
     Active Substance: PREDNISOLONE
     Dosage: IN THE MORNING
     Route: 048
     Dates: start: 2002, end: 2002
  9. PREDNISOLONE [Concomitant]
     Active Substance: PREDNISOLONE
     Dosage: IN THE MORNING
     Route: 048
     Dates: start: 2002, end: 2002
  10. PREDNISOLONE [Concomitant]
     Active Substance: PREDNISOLONE
     Dosage: DOSE UNKNOWN
     Route: 048
  11. PREDNISOLONE [Concomitant]
     Active Substance: PREDNISOLONE
     Dosage: IN THE MORNING
     Route: 048
     Dates: start: 201408
  12. PREDNISOLONE [Concomitant]
     Active Substance: PREDNISOLONE
     Route: 048
  13. PREDNISOLONE [Concomitant]
     Active Substance: PREDNISOLONE
     Dosage: DOSE UNKNOWN
     Route: 048
     Dates: start: 2017, end: 201810
  14. ESCHERICHIA COLI [Concomitant]
     Active Substance: ESCHERICHIA COLI
     Indication: Haemorrhoids
     Dosage: 1-2 TIMES, DOSE UNKNOWN
     Route: 061
     Dates: start: 200204
  15. ESCHERICHIA COLI [Concomitant]
     Active Substance: ESCHERICHIA COLI
     Indication: Anal polyp
     Dosage: DOSE UNKNOWN
     Route: 061
     Dates: start: 201102
  16. ESCHERICHIA COLI [Concomitant]
     Active Substance: ESCHERICHIA COLI
     Dosage: DOSE UNKNOWN
     Route: 061
     Dates: start: 201803
  17. ESCHERICHIA COLI [Concomitant]
     Active Substance: ESCHERICHIA COLI
     Dosage: 1-2 TIMES PER DAY, DOSE UNKNOWN, FOR PAIN
     Route: 061
     Dates: start: 201903
  18. BUDESONIDE [Concomitant]
     Active Substance: BUDESONIDE
     Indication: Colitis ulcerative
     Dosage: 1-2 TIMES PER DAY, DOSE UNKNOWN
     Route: 054
     Dates: start: 201806
  19. BETAMETHASONE SODIUM PHOSPHATE [Concomitant]
     Active Substance: BETAMETHASONE SODIUM PHOSPHATE
     Indication: Colitis ulcerative
     Route: 054
     Dates: start: 200204
  20. BETAMETHASONE SODIUM PHOSPHATE [Concomitant]
     Active Substance: BETAMETHASONE SODIUM PHOSPHATE
     Dosage: 1-2 PIECES PER DAY
     Route: 054
     Dates: start: 200604
  21. BETAMETHASONE SODIUM PHOSPHATE [Concomitant]
     Active Substance: BETAMETHASONE SODIUM PHOSPHATE
     Dosage: DOSE UNKNOWN
     Route: 054
  22. BETAMETHASONE SODIUM PHOSPHATE [Concomitant]
     Active Substance: BETAMETHASONE SODIUM PHOSPHATE
     Dosage: DOSE UNKNOWN, AT BEDTIME
     Route: 054
     Dates: start: 201806
  23. BETAMETHASONE SODIUM PHOSPHATE [Concomitant]
     Active Substance: BETAMETHASONE SODIUM PHOSPHATE
     Dosage: DOSE UNKNOWN, AT BEDTIME, 1-3 TIMES A WEEK, WHEN WORSENING
     Route: 054
     Dates: start: 201903
  24. BETAMETHASONE SODIUM PHOSPHATE [Concomitant]
     Active Substance: BETAMETHASONE SODIUM PHOSPHATE
     Dosage: DOSE UNKNOWN, WHEN WORSENING
     Route: 054
     Dates: start: 202206
  25. CORTRIL [Concomitant]
     Active Substance: HYDROCORTISONE
     Indication: Secondary adrenocortical insufficiency
     Dosage: DOSE UNKNOWN
     Route: 048
     Dates: start: 201701, end: 2017
  26. CORTRIL [Concomitant]
     Active Substance: HYDROCORTISONE
     Dosage: 2-4 TIMES A DAY, 10-5-2.5, ETC.
     Route: 048
     Dates: start: 2018
  27. CORTRIL [Concomitant]
     Active Substance: HYDROCORTISONE
     Dosage: 2-3 TIMES A DAY, 10-5-2.5, ETC.
     Route: 048
  28. SOLANAX [Concomitant]
     Active Substance: ALPRAZOLAM
     Indication: Panic disorder
     Dosage: DOSE UNKNOWN, P.R.N
     Route: 048
     Dates: start: 200910
  29. SOLANAX [Concomitant]
     Active Substance: ALPRAZOLAM
     Dosage: IN THE MORNING
     Route: 048
     Dates: start: 201408
  30. LAC B [BIFIDOBACTERIUM BIFIDUM] [Concomitant]
     Dosage: AFTER EACH MEAL
     Route: 048
     Dates: start: 2020
  31. MAGNESIUM OXIDE [Concomitant]
     Active Substance: MAGNESIUM OXIDE
     Indication: Anal polyp
     Dosage: DOSE UNKNOWN, AFTER EACH MEAL
     Route: 048
     Dates: start: 201903
  32. UNSPECIFIED INGREDIENT [Concomitant]
     Active Substance: UNSPECIFIED INGREDIENT
     Dosage: DOSE UNKNOWN
     Route: 030
  33. UNSPECIFIED INGREDIENT [Concomitant]
     Active Substance: UNSPECIFIED INGREDIENT
     Dosage: DOSE UNKNOWN
     Route: 030

REACTIONS (3)
  - Herpes zoster [Recovered/Resolved]
  - Malaise [Recovered/Resolved]
  - Sacroiliac joint dysfunction [Unknown]

NARRATIVE: CASE EVENT DATE: 20180801
